FAERS Safety Report 8225154-0 (Version None)
Quarter: 2012Q1

REPORT INFORMATION
  Report Type: 
  Country: None (occurrence: None)
  Receive Date: 20120319
  Receipt Date: 20120220
  Transmission Date: 20120608
  Serious: Yes (Other)
  Sender: FDA-Public Use
  Company Number: 2012P1006912

PATIENT
  Age: 50 Year
  Sex: Female
  Weight: 74.8435 kg

DRUGS (1)
  1. PHENAZOPYRIDINE HCL TAB [Suspect]
     Indication: URINARY TRACT INFECTION
     Dosage: X1, PO
     Route: 048
     Dates: start: 20120220, end: 20120220

REACTIONS (4)
  - URTICARIA [None]
  - BLOOD PRESSURE DECREASED [None]
  - PRURITUS [None]
  - ERYTHEMA [None]
